FAERS Safety Report 19298393 (Version 1)
Quarter: 2021Q2

REPORT INFORMATION
  Report Type: Spontaneous
  Country: BR (occurrence: BR)
  Receive Date: 20210524
  Receipt Date: 20210524
  Transmission Date: 20210717
  Serious: Yes (Other)
  Sender: FDA-Public Use
  Company Number: BR-TAKEDA-2021TUS031036

PATIENT
  Age: 26 Year
  Sex: Male
  Weight: 85 kg

DRUGS (1)
  1. DEXILANT [Suspect]
     Active Substance: DEXLANSOPRAZOLE
     Indication: OESOPHAGITIS
     Dosage: 60 MILLIGRAM, QD
     Route: 065
     Dates: start: 202104

REACTIONS (8)
  - Dry mouth [Unknown]
  - Abdominal pain [Unknown]
  - Off label use [Unknown]
  - Swelling [Unknown]
  - Adverse drug reaction [Unknown]
  - Diarrhoea [Unknown]
  - COVID-19 [Unknown]
  - Flatulence [Unknown]

NARRATIVE: CASE EVENT DATE: 202104
